FAERS Safety Report 10037206 (Version 1)
Quarter: 2014Q1

REPORT INFORMATION
  Report Type: Spontaneous
  Country: US (occurrence: None)
  Receive Date: 20140325
  Receipt Date: 20140325
  Transmission Date: 20141002
  Serious: No
  Sender: FDA-Public Use
  Company Number: None

PATIENT
  Age: 89 Year
  Sex: Male

DRUGS (7)
  1. XTANDI [Suspect]
     Indication: PROSTATE CANCER
     Dosage: 2 TABLETS
     Route: 048
  2. FLOMAX [Concomitant]
  3. TRAVATAN EYE DROPS [Concomitant]
  4. ZOLODEX [Concomitant]
  5. MULTIVITAMIN [Concomitant]
  6. GUAIFENESIN [Concomitant]
  7. VITAMIN B [Concomitant]

REACTIONS (1)
  - Local swelling [None]
